FAERS Safety Report 4396199-6 (Version None)
Quarter: 2004Q3

REPORT INFORMATION
  Report Type: 
  Country: None (occurrence: None)
  Receive Date: 20040709
  Receipt Date: 20040628
  Transmission Date: 20050211
  Serious: Yes (Hospitalization)
  Sender: FDA-Public Use
  Company Number: 04P-163-0264877-00

PATIENT
  Age: 59 Year
  Sex: Female
  Weight: 114.3065 kg

DRUGS (8)
  1. HUMIRA [Suspect]
     Indication: RHEUMATOID ARTHRITIS
     Dosage: 40 MG, 1 IN 1 WK, SUBCUTANEOUS
     Route: 058
     Dates: start: 20040511, end: 20040530
  2. HUMIRA [Suspect]
     Indication: RHEUMATOID ARTHRITIS
     Dosage: 40 MG, 1 IN 1 WK, SUBCUTANEOUS
     Route: 058
     Dates: start: 20040609
  3. FUROSEMIDE [Concomitant]
  4. VICODIN [Concomitant]
  5. PREDNISONE [Concomitant]
  6. RISEDRONATE SODIUM [Concomitant]
  7. CALCIUM [Concomitant]
  8. KINESET [Concomitant]

REACTIONS (7)
  - ABASIA [None]
  - BLOOD CALCIUM DECREASED [None]
  - BLOOD POTASSIUM DECREASED [None]
  - CONDITION AGGRAVATED [None]
  - HYPOAESTHESIA [None]
  - PNEUMONIA [None]
  - RHEUMATOID ARTHRITIS [None]
